FAERS Safety Report 7197586-3 (Version None)
Quarter: 2010Q4

REPORT INFORMATION
  Report Type: 
  Country: None (occurrence: None)
  Receive Date: 20101206
  Receipt Date: 20080505
  Transmission Date: 20110411
  Serious: Yes (Other)
  Sender: FDA-Public Use
  Company Number: 200813468

PATIENT
  Sex: Female

DRUGS (2)
  1. VIVAGLOBIN [Suspect]
     Dosage: SUBCUTANEOUS
     Route: 058
  2. CIPRO [Concomitant]

REACTIONS (3)
  - CELLULITIS [None]
  - DEEP VEIN THROMBOSIS [None]
  - RASH MACULO-PAPULAR [None]
